FAERS Safety Report 4691082-0 (Version None)
Quarter: 2005Q2

REPORT INFORMATION
  Report Type: 
  Country: None (occurrence: None)
  Receive Date: 20050610
  Receipt Date: 20050525
  Transmission Date: 20051028
  Serious: Yes (Other)
  Sender: FDA-Public Use
  Company Number: GB-2005-009110

PATIENT

DRUGS (2)
  1. CAMPATH [Suspect]
     Indication: RENAL TRANSPLANT
     Dosage: 20 MG
  2. CYCLOSPORINE [Suspect]
     Indication: RENAL TRANSPLANT
     Dosage: HALF-DOSE MONOTHERAPY FROM DAY3

REACTIONS (2)
  - AUTOIMMUNE DISORDER [None]
  - HYPOTHYROIDISM [None]
